FAERS Safety Report 20643234 (Version 5)
Quarter: 2022Q3

REPORT INFORMATION
  Report Type: Report from Study
  Country: US (occurrence: US)
  Receive Date: 20220328
  Receipt Date: 20220730
  Transmission Date: 20221027
  Serious: No
  Sender: FDA-Public Use
  Company Number: US-NOVARTISTESTPH-NVSC2022US068611

PATIENT
  Sex: Male

DRUGS (2)
  1. TABRECTA [Suspect]
     Active Substance: CAPMATINIB
     Indication: Product used for unknown indication
     Dosage: UNK
     Route: 048
  2. TABRECTA [Suspect]
     Active Substance: CAPMATINIB
     Route: 048

REACTIONS (10)
  - Tremor [Unknown]
  - Weight increased [Unknown]
  - COVID-19 [Unknown]
  - Affect lability [Unknown]
  - Fatigue [Unknown]
  - Peripheral swelling [Unknown]
  - Nausea [Unknown]
  - Vomiting [Unknown]
  - Weight decreased [Unknown]
  - Oedema peripheral [Unknown]
